FAERS Safety Report 12455954 (Version 1)
Quarter: 2016Q2

REPORT INFORMATION
  Report Type: Spontaneous
  Country: GB (occurrence: GB)
  Receive Date: 20160610
  Receipt Date: 20160610
  Transmission Date: 20160815
  Serious: Yes (Death)
  Sender: FDA-Public Use
  Company Number: GB-BAXALTA-2016BLT003824

PATIENT
  Sex: Male

DRUGS (2)
  1. SUBCUVIA [Suspect]
     Active Substance: HUMAN IMMUNOGLOBULIN G
     Dosage: 40 ML, 1X A WEEK
     Route: 058
     Dates: start: 20150511
  2. SUBCUVIA [Suspect]
     Active Substance: HUMAN IMMUNOGLOBULIN G
     Indication: PRODUCT USED FOR UNKNOWN INDICATION
     Dosage: 10 ML, 1X A WEEK
     Route: 058
     Dates: start: 20150511

REACTIONS (1)
  - Death [Fatal]
